FAERS Safety Report 8195321-3 (Version None)
Quarter: 2012Q1

REPORT INFORMATION
  Report Type: 
  Country: None (occurrence: None)
  Receive Date: 20120308
  Receipt Date: 20120305
  Transmission Date: 20120608
  Serious: Yes (Hospitalization, Congenital Anomaly)
  Sender: FDA-Public Use
  Company Number: US-GLAXOSMITHKLINE-A0930796A

PATIENT
  Sex: Female

DRUGS (3)
  1. PAXIL [Suspect]
     Indication: ANXIETY
     Dosage: 20MG PER DAY
     Route: 064
     Dates: start: 19990201, end: 20021201
  2. MULTI-VITAMINS [Concomitant]
  3. LEVOXYL [Concomitant]

REACTIONS (7)
  - CLEFT LIP AND PALATE [None]
  - CONGENITAL PSEUDARTHROSIS [None]
  - TALIPES [None]
  - CLAVICLE FRACTURE [None]
  - ERB'S PALSY [None]
  - SLEEP APNOEA SYNDROME [None]
  - FOETAL EXPOSURE DURING PREGNANCY [None]
